FAERS Safety Report 24753401 (Version 1)
Quarter: 2024Q4

REPORT INFORMATION
  Report Type: Spontaneous
  Country: US (occurrence: US)
  Receive Date: 20241219
  Receipt Date: 20241219
  Transmission Date: 20250115
  Serious: Yes (Hospitalization, Other)
  Sender: CIPLA
  Company Number: US-MLMSERVICE-20241202-PI276131-00152-1

PATIENT

DRUGS (12)
  1. IRINOTECAN [Interacting]
     Active Substance: IRINOTECAN
     Indication: Pancreatic carcinoma metastatic
     Dosage: FIRST LINE MFFX, CYCLE 1 DAY 7
     Route: 065
  2. IRINOTECAN [Interacting]
     Active Substance: IRINOTECAN
     Indication: Metastases to liver
  3. IRINOTECAN [Interacting]
     Active Substance: IRINOTECAN
     Indication: Metastases to lung
  4. FLUOROURACIL [Interacting]
     Active Substance: FLUOROURACIL
     Indication: Pancreatic carcinoma metastatic
     Dosage: FIRST LINE MFFX, CYCLE 1 DAY 7
     Route: 065
  5. FLUOROURACIL [Interacting]
     Active Substance: FLUOROURACIL
     Indication: Metastases to liver
  6. FLUOROURACIL [Interacting]
     Active Substance: FLUOROURACIL
     Indication: Metastases to lung
  7. OXALIPLATIN [Concomitant]
     Active Substance: OXALIPLATIN
     Indication: Pancreatic carcinoma metastatic
     Dosage: FIRST LINE MFFX, CYCLE 1 DAY 7
     Route: 065
  8. OXALIPLATIN [Concomitant]
     Active Substance: OXALIPLATIN
     Indication: Metastases to liver
  9. OXALIPLATIN [Concomitant]
     Active Substance: OXALIPLATIN
     Indication: Metastases to lung
  10. LEUCOVORIN [Concomitant]
     Active Substance: LEUCOVORIN\LEUCOVORIN CALCIUM
     Indication: Pancreatic carcinoma metastatic
     Dosage: FIRST LINE MFFX, CYCLE 1 DAY 7
     Route: 065
  11. LEUCOVORIN [Concomitant]
     Active Substance: LEUCOVORIN\LEUCOVORIN CALCIUM
     Indication: Metastases to liver
  12. LEUCOVORIN [Concomitant]
     Active Substance: LEUCOVORIN\LEUCOVORIN CALCIUM
     Indication: Metastases to lung

REACTIONS (3)
  - Encephalopathy [Recovering/Resolving]
  - Drug-genetic interaction [Recovering/Resolving]
  - Myelosuppression [Recovered/Resolved]
